FAERS Safety Report 24810215 (Version 1)
Quarter: 2025Q1

REPORT INFORMATION
  Report Type: Spontaneous
  Country: US (occurrence: None)
  Receive Date: 20250103
  Receipt Date: 20250103
  Transmission Date: 20250409
  Serious: Yes (Other)
  Sender: FDA-CTU
  Company Number: None

PATIENT
  Age: 6 Year
  Sex: Male
  Weight: 24.3 kg

DRUGS (1)
  1. TAMIFLU [Suspect]
     Active Substance: OSELTAMIVIR PHOSPHATE
     Indication: Influenza
     Dates: start: 20250102, end: 20250102

REACTIONS (3)
  - Crying [None]
  - Screaming [None]
  - Self-destructive behaviour [None]

NARRATIVE: CASE EVENT DATE: 20250102
